FAERS Safety Report 8792741 (Version 1)
Quarter: 2012Q4

REPORT INFORMATION
  Report Type: 
  Country: FR (occurrence: FR)
  Receive Date: 20120918
  Receipt Date: 20120918
  Transmission Date: 20130627
  Serious: Yes (Hospitalization)
  Sender: FDA-Public Use
  Company Number: FR-BAYER-2012-094203

PATIENT
  Age: 21 Year
  Sex: Female

DRUGS (3)
  1. YAZ [Suspect]
     Dosage: 1 DF, QD
     Route: 048
     Dates: start: 201205
  2. SEROPLEX [Suspect]
     Indication: DEPRESSION
     Dosage: UNK
     Route: 048
     Dates: start: 201205, end: 20120721
  3. XANAX [Suspect]
     Dosage: UNK
     Route: 048
     Dates: start: 201205, end: 20120721

REACTIONS (6)
  - Aplasia [Unknown]
  - Haemorrhagic disorder [Unknown]
  - Ecchymosis [Unknown]
  - Dyspnoea [Unknown]
  - Infection [None]
  - Menorrhagia [None]
